FAERS Safety Report 5280156-1 (Version None)
Quarter: 2007Q1

REPORT INFORMATION
  Report Type: 
  Country: None (occurrence: None)
  Receive Date: 20070326
  Receipt Date: 20070326
  Transmission Date: 20070707
  Serious: Yes (Other)
  Sender: FDA-Public Use
  Company Number: None

PATIENT
  Age: 55 Year
  Sex: Female
  Weight: 72.5755 kg

DRUGS (2)
  1. DILTIAZEM [Suspect]
     Indication: HEART RATE IRREGULAR
     Dosage: 1 CAPSULE DAILY PO
     Route: 048
     Dates: start: 20070115, end: 20070319
  2. DILTIAZEM [Suspect]
     Indication: TACHYCARDIA
     Dosage: 1 CAPSULE DAILY PO
     Route: 048
     Dates: start: 20070115, end: 20070319

REACTIONS (11)
  - CONSTIPATION [None]
  - FLUID RETENTION [None]
  - HYPOTRICHOSIS [None]
  - JOINT SWELLING [None]
  - MUSCLE SPASMS [None]
  - NASOPHARYNGITIS [None]
  - OEDEMA PERIPHERAL [None]
  - PAIN OF SKIN [None]
  - PULMONARY CONGESTION [None]
  - RASH PRURITIC [None]
  - SKIN HAEMORRHAGE [None]
